FAERS Safety Report 21117690 (Version 1)
Quarter: 2022Q3

REPORT INFORMATION
  Report Type: Spontaneous
  Country: GB (occurrence: GB)
  Receive Date: 20220722
  Receipt Date: 20220722
  Transmission Date: 20221026
  Serious: Yes (Hospitalization, Other)
  Sender: FDA-Public Use
  Company Number: GB-ASTELLAS-2022US016867

PATIENT
  Age: 72 Year
  Sex: Male

DRUGS (12)
  1. RAMIPRIL [Suspect]
     Active Substance: RAMIPRIL
     Indication: Product used for unknown indication
     Dosage: 10 MILLIGRAM DAILY; UNIT DOSE : 10 MG , FREQUENCY : 1 , FREQUENCY TIME : 1 DAYS
     Route: 065
  2. SIMVASTATIN [Suspect]
     Active Substance: SIMVASTATIN
     Indication: Product used for unknown indication
     Dosage: 40 MILLIGRAM DAILY; AT BEDTIME, UNIT DOSE : 40  MG , FREQUENCY : 1 , FREQUENCY TIME : 1 DAYS
     Route: 065
  3. TAMSULOSIN [Suspect]
     Active Substance: TAMSULOSIN
     Indication: Lower urinary tract symptoms
     Dosage: 400 MICROGRAM DAILY; UNIT DOSE : 400 MICROGRAM  , FREQUENCY : 1 , FREQUENCY TIME : 1 DAYS
     Route: 065
  4. PIOGLITAZONE [Suspect]
     Active Substance: PIOGLITAZONE
     Indication: Product used for unknown indication
     Dosage: 30 MILLIGRAM DAILY; UNIT DOSE : 30  MG , FREQUENCY : 1 , FREQUENCY TIME : 1 DAYS
     Route: 065
  5. OMEPRAZOLE [Suspect]
     Active Substance: OMEPRAZOLE
     Indication: Product used for unknown indication
     Dosage: 20 MILLIGRAM DAILY; UNIT DOSE : 20 MG , FREQUENCY : 1 , FREQUENCY TIME : 1 DAYS
     Route: 065
  6. ALLOPURINOL [Suspect]
     Active Substance: ALLOPURINOL
     Indication: Product used for unknown indication
     Dosage: 100 MILLIGRAM DAILY; UNIT DOSE : 100 MG , FREQUENCY : 1 , FREQUENCY TIME : 1 DAYS
     Route: 065
  7. ALLOPURINOL [Suspect]
     Active Substance: ALLOPURINOL
     Dosage: 10 MILLIGRAM DAILY; UNIT DOSE : 10 MG , FREQUENCY : 1 , FREQUENCY TIME : 1 DAYS
     Route: 065
  8. METFORMIN [Suspect]
     Active Substance: METFORMIN HYDROCHLORIDE
     Indication: Product used for unknown indication
     Dosage: UNIT DOSE : 500 MG , FREQUENCY : 1 , FREQUENCY TIME : 0.33 DAYS
     Route: 065
  9. ASPIRIN [Suspect]
     Active Substance: ASPIRIN
     Indication: Product used for unknown indication
     Dosage: 75 MILLIGRAM DAILY; EACH MORNING, UNIT DOSE : 75 MG , FREQUENCY : 1 , FREQUENCY TIME : 1 DAYS
     Route: 065
  10. ATENOLOL [Suspect]
     Active Substance: ATENOLOL
     Indication: Product used for unknown indication
     Dosage: 50 MILLIGRAM DAILY; UNIT DOSE : 50 MG , FREQUENCY : 1 , FREQUENCY TIME : 1 DAYS
     Route: 065
  11. GOSERELIN [Suspect]
     Active Substance: GOSERELIN
     Indication: Product used for unknown indication
     Dosage: UNIT DOSE :10.8 MG,  FREQUENCY TIME : 12 WEEKS
     Route: 065
  12. XTANDI [Suspect]
     Active Substance: ENZALUTAMIDE
     Indication: Product used for unknown indication
     Dosage: 160 MILLIGRAM DAILY; UNIT DOSE : 160  MG , FREQUENCY : 1 , FREQUENCY TIME : 1 DAYS
     Route: 065

REACTIONS (6)
  - Malignant spinal cord compression [Recovered/Resolved]
  - Malignant neoplasm progression [Recovered/Resolved]
  - Hypophosphataemia [Recovered/Resolved]
  - Hypomagnesaemia [Recovered/Resolved]
  - Pruritus [Recovered/Resolved]
  - Erythema [Recovered/Resolved]

NARRATIVE: CASE EVENT DATE: 20220504
